FAERS Safety Report 20438140 (Version 1)
Quarter: 2022Q1

REPORT INFORMATION
  Report Type: Spontaneous
  Country: DE (occurrence: DE)
  Receive Date: 20220207
  Receipt Date: 20220207
  Transmission Date: 20220424
  Serious: No
  Sender: FDA-Public Use
  Company Number: DE-ALKEM LABORATORIES LIMITED-DE-ALKEM-2021-08030

PATIENT
  Age: 59 Year
  Sex: Male
  Weight: 70 kg

DRUGS (1)
  1. PREGABALIN [Suspect]
     Active Substance: PREGABALIN
     Indication: Abdominal pain
     Dosage: 25 MILLIGRAM, QD
     Route: 048
     Dates: start: 20210922, end: 20210927

REACTIONS (3)
  - Gait inability [Recovered/Resolved]
  - Dysstasia [Recovered/Resolved]
  - Pain in extremity [Recovered/Resolved]
